FAERS Safety Report 9297931 (Version 1)
Quarter: 2013Q2

REPORT INFORMATION
  Report Type: Report from Study
  Country: CA (occurrence: CA)
  Receive Date: 20130520
  Receipt Date: 20130520
  Transmission Date: 20140414
  Serious: Yes (Other)
  Sender: FDA-Public Use
  Company Number: CA-JNJFOC-20130510460

PATIENT
  Age: 38 Year
  Sex: Female
  Weight: 65 kg

DRUGS (2)
  1. REMICADE [Suspect]
     Indication: CROHN^S DISEASE
     Route: 042
     Dates: start: 20080126, end: 20100709
  2. REMICADE [Suspect]
     Indication: CROHN^S DISEASE
     Route: 042
     Dates: start: 20120318

REACTIONS (6)
  - Blood pressure increased [Unknown]
  - Exposure during pregnancy [Not Recovered/Not Resolved]
  - Infusion related reaction [Unknown]
  - Uterine contractions during pregnancy [Unknown]
  - Headache [Recovered/Resolved]
  - Secretion discharge [Not Recovered/Not Resolved]
